FAERS Safety Report 4322451-6 (Version None)
Quarter: 2004Q1

REPORT INFORMATION
  Report Type: 
  Country: None (occurrence: None)
  Receive Date: 20040319
  Receipt Date: 20040223
  Transmission Date: 20041129
  Serious: Yes (Other)
  Sender: FDA-Public Use
  Company Number: 200312603GDS

PATIENT
  Age: 83 Year
  Sex: Male

DRUGS (2)
  1. STATIVA (CERIVASTATIN SODIUM) [Suspect]
     Dosage: 0.4 MG, TOTAL DAILY, ORAL
     Route: 048
     Dates: start: 20010620, end: 20010722
  2. BICARBONATO DI SODIO [Concomitant]

REACTIONS (7)
  - ACIDOSIS [None]
  - CEREBROVASCULAR ACCIDENT [None]
  - DIFFICULTY IN WALKING [None]
  - HYPERKALAEMIA [None]
  - MYALGIA [None]
  - RENAL FAILURE [None]
  - RHABDOMYOLYSIS [None]
